FAERS Safety Report 4504402-4 (Version None)
Quarter: 2004Q4

REPORT INFORMATION
  Report Type: 
  Country: None (occurrence: None)
  Receive Date: 20041118
  Receipt Date: 20041115
  Transmission Date: 20050328
  Serious: Yes (Hospitalization, Disabling)
  Sender: FDA-Public Use
  Company Number: US-ROCHE-386327

PATIENT
  Sex: Female

DRUGS (1)
  1. ACCUTANE [Suspect]
     Indication: DRUG USE FOR UNKNOWN INDICATION
     Route: 048
     Dates: start: 20040402

REACTIONS (7)
  - BONE DISORDER [None]
  - INTERVERTEBRAL DISC DEGENERATION [None]
  - KIDNEY INFECTION [None]
  - KYPHOSIS [None]
  - MUSCULOSKELETAL DISORDER [None]
  - OSTEOCHONDROSIS [None]
  - RENAL DISORDER [None]
